FAERS Safety Report 7368802-X (Version None)
Quarter: 2011Q1

REPORT INFORMATION
  Report Type: 
  Country: None (occurrence: None)
  Receive Date: 20110323
  Receipt Date: 20110317
  Transmission Date: 20110831
  Serious: Yes (Death, Hospitalization)
  Sender: FDA-Public Use
  Company Number: ZA-SANOFI-AVENTIS-2011SA013502

PATIENT
  Age: 67 Year
  Sex: Female
  Weight: 56.5 kg

DRUGS (20)
  1. MAXOLON [Concomitant]
     Route: 048
     Dates: start: 20110221
  2. MEDROL [Concomitant]
     Route: 048
     Dates: start: 20110221
  3. RANITIDINE [Concomitant]
     Route: 042
     Dates: start: 20110221
  4. MAGNESIUM SULFATE [Concomitant]
     Route: 042
     Dates: start: 20110221
  5. EMEND [Concomitant]
     Route: 048
     Dates: start: 20110221, end: 20110221
  6. MST [Concomitant]
     Route: 048
     Dates: start: 20110225, end: 20110227
  7. GRANOCYTE [Suspect]
     Indication: PROPHYLAXIS
     Route: 065
     Dates: start: 20110224
  8. EMEND [Concomitant]
     Route: 048
     Dates: start: 20110221
  9. PHENERGAN [Concomitant]
     Route: 030
     Dates: start: 20110221
  10. FUROSEMIDE [Concomitant]
     Route: 048
     Dates: start: 20110221
  11. HEPARIN [Concomitant]
     Route: 042
     Dates: start: 20110221
  12. ALL OTHER THERAPEUTIC PRODUCTS [Concomitant]
     Route: 055
  13. CISPLATIN [Suspect]
     Route: 042
     Dates: start: 20110221, end: 20110223
  14. DOCETAXEL [Suspect]
     Route: 041
     Dates: start: 20110221, end: 20110221
  15. DECASONE [Concomitant]
     Route: 065
     Dates: start: 20110221, end: 20110223
  16. SOLU-CORTEF [Concomitant]
     Route: 042
     Dates: start: 20110221
  17. KYTRIL [Concomitant]
     Route: 042
     Dates: start: 20110225, end: 20110225
  18. FLUOROURACIL [Suspect]
     Route: 042
     Dates: start: 20110221, end: 20110223
  19. PALONOSETRON [Concomitant]
     Route: 042
     Dates: start: 20110221
  20. KYTRIL [Concomitant]
     Route: 048
     Dates: start: 20110225, end: 20110227

REACTIONS (2)
  - DEATH [None]
  - NEUTROPENIA [None]
